FAERS Safety Report 5187677-0 (Version None)
Quarter: 2006Q4

REPORT INFORMATION
  Report Type: 
  Country: None (occurrence: None)
  Receive Date: 20061214
  Receipt Date: 20061129
  Transmission Date: 20070319
  Serious: Yes (Hospitalization)
  Sender: FDA-Public Use
  Company Number: 233619

PATIENT
  Sex: Female

DRUGS (1)
  1. HERCEPTIN [Suspect]
     Dosage: INTRAVENOUS
     Route: 042
     Dates: start: 20061115

REACTIONS (5)
  - C-REACTIVE PROTEIN INCREASED [None]
  - DIZZINESS [None]
  - HAEMOGLOBIN DECREASED [None]
  - SEPSIS [None]
  - THERAPEUTIC PRODUCT CONTAMINATION [None]
